FAERS Safety Report 7491858-0 (Version None)
Quarter: 2011Q2

REPORT INFORMATION
  Report Type: 
  Country: None (occurrence: None)
  Receive Date: 20110519
  Receipt Date: 20110516
  Transmission Date: 20111010
  Serious: Yes (Other)
  Sender: FDA-Public Use
  Company Number: CHPA2011GB06749

PATIENT
  Sex: Male

DRUGS (3)
  1. OTRIVIN [Suspect]
     Indication: NASAL POLYPS
     Dosage: 2 DF, QHS
     Route: 045
     Dates: start: 20100101
  2. NASONEX [Concomitant]
     Dosage: UNK
     Route: 045
  3. DRUG THERAPY NOS [Concomitant]
     Indication: TOOTH EXTRACTION
     Dosage: UNK, UNK

REACTIONS (4)
  - TOOTH EXTRACTION [None]
  - INCORRECT DRUG ADMINISTRATION DURATION [None]
  - PARAESTHESIA [None]
  - OFF LABEL USE [None]
